FAERS Safety Report 8792838 (Version 1)
Quarter: 2012Q4

REPORT INFORMATION
  Report Type: 
  Country: DE (occurrence: DE)
  Receive Date: 20120918
  Receipt Date: 20120918
  Transmission Date: 20130627
  Serious: Yes (Hospitalization, Other)
  Sender: FDA-Public Use
  Company Number: DE-ELI_LILLY_AND_COMPANY-DE201209002037

PATIENT
  Sex: Female

DRUGS (3)
  1. FORSTEO [Suspect]
     Indication: OSTEOPOROSIS
     Dosage: UNK, qd
     Route: 058
     Dates: start: 20101110
  2. ANTIHYPERTENSIVES [Concomitant]
  3. VITAMIN D NOS [Concomitant]

REACTIONS (3)
  - Patella fracture [Not Recovered/Not Resolved]
  - Fall [Recovered/Resolved]
  - Brain hypoxia [Unknown]
